FAERS Safety Report 23194061 (Version 3)
Quarter: 2024Q1

REPORT INFORMATION
  Report Type: Report from Study
  Country: CA (occurrence: CA)
  Receive Date: 20231117
  Receipt Date: 20240107
  Transmission Date: 20240410
  Serious: No
  Sender: FDA-Public Use
  Company Number: CA-JNJFOC-20231107349

PATIENT
  Age: 17 Year
  Sex: Female

DRUGS (2)
  1. STELARA [Suspect]
     Active Substance: USTEKINUMAB
     Indication: Psoriasis
     Dosage: STRENGTH: 45.00 MG / 0.50 ML
     Route: 058
  2. STELARA [Suspect]
     Active Substance: USTEKINUMAB
     Route: 058

REACTIONS (4)
  - Device defective [Unknown]
  - Product dose omission issue [Unknown]
  - Incorrect product formulation administered [Unknown]
  - Incorrect dose administered [Unknown]

NARRATIVE: CASE EVENT DATE: 20231001
